FAERS Safety Report 12935122 (Version 2)
Quarter: 2019Q4

REPORT INFORMATION
  Report Type: Spontaneous
  Country: US (occurrence: US)
  Receive Date: 20161114
  Receipt Date: 20191019
  Transmission Date: 20200122
  Serious: No
  Sender: FDA-Public Use
  Company Number: US-TEVA-706413USA

PATIENT
  Age: 34 Year
  Sex: Female
  Weight: 57.2 kg

DRUGS (3)
  1. PROVIGIL [Suspect]
     Active Substance: MODAFINIL
     Indication: SOMNOLENCE
     Dosage: 100 MILLIGRAM DAILY;
     Dates: start: 2014
  2. PROVIGIL [Suspect]
     Active Substance: MODAFINIL
     Dosage: 200 MILLIGRAM DAILY;
     Dates: start: 2014
  3. MIRENA [Concomitant]
     Active Substance: LEVONORGESTREL
     Indication: CONTRACEPTION
     Route: 015

REACTIONS (6)
  - Therapeutic product effect decreased [Unknown]
  - Feeling abnormal [Unknown]
  - Maternal exposure during pregnancy [Unknown]
  - Feeling jittery [Recovered/Resolved]
  - Intentional product misuse [Unknown]
  - Live birth [Unknown]

NARRATIVE: CASE EVENT DATE: 20161019
